FAERS Safety Report 6307237-5 (Version None)
Quarter: 2009Q3

REPORT INFORMATION
  Report Type: 
  Country: None (occurrence: None)
  Receive Date: 20090812
  Receipt Date: 20090812
  Transmission Date: 20100115
  Serious: No
  Sender: FDA-Public Use
  Company Number: None

PATIENT
  Age: 75 Year
  Sex: Male
  Weight: 104.3273 kg

DRUGS (1)
  1. FORADIL [Suspect]
     Dosage: 1 CAPSULE BID INHAL
     Route: 055
     Dates: start: 20090212, end: 20090718

REACTIONS (2)
  - INCORRECT ROUTE OF DRUG ADMINISTRATION [None]
  - MEDICATION ERROR [None]
